FAERS Safety Report 24556966 (Version 2)
Quarter: 2024Q4

REPORT INFORMATION
  Report Type: Report from Study
  Country: IT (occurrence: IT)
  Receive Date: 20241028
  Receipt Date: 20241125
  Transmission Date: 20250115
  Serious: Yes (Hospitalization, Other)
  Sender: AMGEN
  Company Number: IT-AMGEN-ITANI2024210179

PATIENT
  Sex: Female
  Weight: 54 kg

DRUGS (13)
  1. CARFILZOMIB [Suspect]
     Active Substance: CARFILZOMIB
     Indication: Plasma cell myeloma
     Dosage: 27 MILLIGRAM PER CUBIC METRE, 6 TIMES/ 28 DAYS
     Route: 040
     Dates: start: 20230830, end: 20240726
  2. CARFILZOMIB [Suspect]
     Active Substance: CARFILZOMIB
     Dosage: 27 MILLIGRAM PER CUBIC METRE, 4 TIMES/ 28 DAYS
     Route: 040
     Dates: start: 20240808, end: 20241004
  3. CLOPIDOGREL [Concomitant]
     Active Substance: CLOPIDOGREL BISULFATE
     Indication: Thrombosis prophylaxis
     Dosage: 75 MILLIGRAM
     Route: 048
     Dates: start: 20170501
  4. PREGABALIN [Concomitant]
     Active Substance: PREGABALIN
     Indication: Arthralgia
     Dosage: 75 MILLIGRAM
     Route: 048
     Dates: start: 2019
  5. LEVOTHYROXINE SODIUM [Concomitant]
     Active Substance: LEVOTHYROXINE SODIUM
     Indication: Thyroiditis
     Dosage: 100 MICROGRAM
     Route: 048
     Dates: start: 20200801
  6. LORMETAZEPAM [Concomitant]
     Active Substance: LORMETAZEPAM
     Indication: Insomnia
     Dosage: 8 GTT DROPS
     Dates: start: 20230807
  7. ACYCLOVIR [Concomitant]
     Active Substance: ACYCLOVIR
     Indication: Antiviral prophylaxis
     Dosage: 400 MILLIGRAM, BID
     Route: 048
     Dates: start: 20230830
  8. SULFAMERAZINE;TRIMETHOPRIM [Concomitant]
     Indication: Cough
     Dosage: 800+160, UNK
     Dates: start: 20231102
  9. PANTOPRAZOLE SODIUM [Concomitant]
     Active Substance: PANTOPRAZOLE SODIUM
     Indication: Prophylaxis
     Dosage: 20 MILLIGRAM, BID
     Route: 048
     Dates: start: 20231109
  10. POTASSIUM CHLORIDE [Concomitant]
     Active Substance: POTASSIUM CHLORIDE
     Indication: Prophylaxis
     Dosage: 600 MILLIGRAM
     Dates: start: 20240103
  11. DULOXETINE [Concomitant]
     Active Substance: DULOXETINE
     Indication: Depression
     Dosage: 30 MILLIGRAM
     Dates: start: 20231123
  12. ENALAPRIL [Concomitant]
     Active Substance: ENALAPRIL
     Indication: Hypertension
     Dosage: 10 MILLIGRAM, AS NECESSARY
     Dates: start: 20240517
  13. AMLODIPINE [Concomitant]
     Active Substance: AMLODIPINE BESYLATE
     Indication: Hypertension
     Dosage: 5 MILLIGRAM, AS NECESSARY
     Dates: start: 20240517

REACTIONS (1)
  - Transient ischaemic attack [Recovered/Resolved]

NARRATIVE: CASE EVENT DATE: 20241008
